FAERS Safety Report 16237554 (Version 1)
Quarter: 2019Q2

REPORT INFORMATION
  Report Type: Spontaneous
  Country: US (occurrence: US)
  Receive Date: 20190424
  Receipt Date: 20190424
  Transmission Date: 20190711
  Serious: Yes (Hospitalization)
  Sender: FDA-Public Use
  Company Number: None

PATIENT
  Age: 64 Year
  Sex: Male

DRUGS (10)
  1. CARBIDOPA. [Concomitant]
     Active Substance: CARBIDOPA
  2. MIRAPEX [Concomitant]
     Active Substance: PRAMIPEXOLE DIHYDROCHLORIDE
  3. MELATONIN [Concomitant]
     Active Substance: MELATONIN
  4. INBRIJA [Suspect]
     Active Substance: LEVODOPA
     Indication: PARKINSON^S DISEASE
     Dosage: ?          OTHER FREQUENCY:AS NEEDED;OTHER ROUTE:INHALE?
     Dates: start: 20190401
  5. RYTARY [Concomitant]
     Active Substance: CARBIDOPA\LEVODOPA
  6. ENTACAPONE. [Concomitant]
     Active Substance: ENTACAPONE
  7. AZILECT [Concomitant]
     Active Substance: RASAGILINE MESYLATE
  8. TYLENOL [Concomitant]
     Active Substance: ACETAMINOPHEN
  9. XANAX [Concomitant]
     Active Substance: ALPRAZOLAM
  10. FLONASE ALGY SPR [Concomitant]

REACTIONS (1)
  - Facial paralysis [None]
